FAERS Safety Report 6919632-1 (Version None)
Quarter: 2010Q3

REPORT INFORMATION
  Report Type: 
  Country: None (occurrence: None)
  Receive Date: 20100809
  Receipt Date: 20100730
  Transmission Date: 20110219
  Serious: Yes (Death)
  Sender: FDA-Public Use
  Company Number: 2010JP002836

PATIENT
  Age: 54 Year
  Sex: Male
  Weight: 58 kg

DRUGS (20)
  1. PROGRAF [Suspect]
     Indication: RHEUMATOID ARTHRITIS
     Dosage: ORAL
     Route: 048
     Dates: end: 20100422
  2. HUMIRA [Suspect]
     Dates: end: 20100422
  3. METHOTREXATE [Suspect]
     Dates: end: 20100422
  4. PREDNISOLONE [Suspect]
     Dosage: 5 MG BID
     Dates: end: 20100422
  5. SULFASALAZINE [Concomitant]
  6. ISONIAZID [Concomitant]
  7. ASPARA-CA (ASPARATE CALCIUM) [Concomitant]
  8. PLATIBIT (ALFACALCIDOL) [Concomitant]
  9. SHIGMABITAN (BENFOTIAMINE, CYANOCOBALAMIN, PYRIDOXINE HYDROCHLORIDE) [Concomitant]
  10. TEPRENONE (TEPRENONE) [Concomitant]
  11. AMPIROAM (AMPIROXICAM) [Concomitant]
  12. FOSAMAC (ALENDRONATE SODIUM) [Concomitant]
  13. EVISTA [Concomitant]
  14. METHYCOBAL (MECOBALAMIN) [Concomitant]
  15. CLARITHROMYCIN [Concomitant]
  16. BISOLVON (BROMHEXINE HYDROCHLORIDE) [Concomitant]
  17. MUCOBULIN (AMBROXOL HYDROCHLORIDE) [Concomitant]
  18. INTAL [Concomitant]
  19. FLUTIDE (FLUTICASONE PROPIONATE) [Concomitant]
  20. SPIRIVA [Concomitant]

REACTIONS (11)
  - ALTERED STATE OF CONSCIOUSNESS [None]
  - BRONCHIECTASIS [None]
  - CONTINUOUS HAEMODIAFILTRATION [None]
  - HAEMORRHAGE [None]
  - HEPATIC ENCEPHALOPATHY [None]
  - HEPATITIS B SURFACE ANTIGEN POSITIVE [None]
  - HEPATITIS E ANTIGEN POSITIVE [None]
  - HEPATITIS FULMINANT [None]
  - NASOPHARYNGITIS [None]
  - NO THERAPEUTIC RESPONSE [None]
  - SURGERY [None]
